FAERS Safety Report 17723767 (Version 1)
Quarter: 2020Q2

REPORT INFORMATION
  Report Type: Report from Study
  Country: GB (occurrence: GB)
  Receive Date: 20200429
  Receipt Date: 20200429
  Transmission Date: 20200714
  Serious: Yes (Other)
  Sender: FDA-Public Use
  Company Number: GB-EMD SERONO-9159343

PATIENT
  Age: 18 Year
  Sex: Female

DRUGS (1)
  1. SAIZEN [Suspect]
     Active Substance: SOMATROPIN
     Indication: GROWTH HORMONE DEFICIENCY
     Dosage: UNKNOWN DOSE AND FREQUENCY
     Dates: end: 202003

REACTIONS (2)
  - Drug ineffective [Unknown]
  - Diabetes insipidus [Recovering/Resolving]
